FAERS Safety Report 12926548 (Version 1)
Quarter: 2016Q4

REPORT INFORMATION
  Report Type: Spontaneous
  Country: FR (occurrence: FR)
  Receive Date: 20161109
  Receipt Date: 20161109
  Transmission Date: 20170207
  Serious: Yes (Other)
  Sender: FDA-Public Use
  Company Number: FR-009507513-1611FRA003507

PATIENT
  Age: 48 Year
  Sex: Male

DRUGS (1)
  1. EMEND [Suspect]
     Active Substance: APREPITANT
     Dosage: UNK
     Route: 048
     Dates: start: 20161103

REACTIONS (2)
  - Product use issue [Unknown]
  - Dysphagia [Unknown]

NARRATIVE: CASE EVENT DATE: 20161103
